FAERS Safety Report 9257910 (Version 1)
Quarter: 2013Q2

REPORT INFORMATION
  Report Type: Spontaneous
  Country: FR (occurrence: None)
  Receive Date: 20130423
  Receipt Date: 20130423
  Transmission Date: 20140414
  Serious: Yes (Death)
  Sender: FDA-Public Use
  Company Number: 1680350

PATIENT
  Age: 51 Year
  Sex: Male

DRUGS (13)
  1. CARBOPLATIN [Suspect]
     Indication: ADENOCARCINOMA
     Route: 042
     Dates: end: 20121115
  2. FLUOROURACILE [Suspect]
     Indication: ADENOCARCINOMA
     Route: 042
     Dates: end: 20121115
  3. LAROXYL [Concomitant]
  4. TEGRETOL [Concomitant]
  5. PRIMPERAN [Concomitant]
  6. OMEPRAZOLE [Concomitant]
  7. PROPRANOLOL [Concomitant]
  8. TERCIAN /00759301/) [Concomitant]
  9. ALPRAZOLAM [Concomitant]
  10. PENTOXIFYLLINE [Concomitant]
  11. CLASTOBAN) [Concomitant]
  12. PREDNISONE [Concomitant]
  13. TOCOPHEROL [Suspect]

REACTIONS (14)
  - Thrombocytopenia [None]
  - Febrile neutropenia [None]
  - Staphylococcus test positive [None]
  - Deep vein thrombosis [None]
  - Aplasia [None]
  - Tachycardia [None]
  - Renal failure [None]
  - Respiratory failure [None]
  - Somnolence [None]
  - Pulmonary embolism [None]
  - Cardiac arrest [None]
  - Haemofiltration [None]
  - Cardiovascular disorder [None]
  - Multi-organ failure [None]
